FAERS Safety Report 12900905 (Version 3)
Quarter: 2016Q4

REPORT INFORMATION
  Report Type: Report from Study
  Country: US (occurrence: US)
  Receive Date: 20161101
  Receipt Date: 20161122
  Transmission Date: 20170207
  Serious: No
  Sender: FDA-Public Use
  Company Number: PHEH2016US028382

PATIENT
  Age: 69 Year
  Sex: Female

DRUGS (1)
  1. COSENTYX [Suspect]
     Active Substance: SECUKINUMAB
     Indication: PSORIASIS
     Dosage: 150 MG, UNK
     Route: 058
     Dates: start: 20161026

REACTIONS (3)
  - Incorrect dose administered [Unknown]
  - Wrong technique in product usage process [Recovered/Resolved]
  - Prescribed underdose [Unknown]

NARRATIVE: CASE EVENT DATE: 20161026
